FAERS Safety Report 15440789 (Version 1)
Quarter: 2018Q3

REPORT INFORMATION
  Report Type: Spontaneous
  Country: MM (occurrence: MM)
  Receive Date: 20180928
  Receipt Date: 20180928
  Transmission Date: 20181010
  Serious: Yes (Other)
  Sender: FDA-Public Use
  Company Number: MM-JNJFOC-20180915163

PATIENT
  Age: 25 Year
  Sex: Female
  Weight: 35 kg

DRUGS (12)
  1. HYDROXYUREA. [Concomitant]
     Active Substance: HYDROXYUREA
     Indication: THROMBOCYTOSIS
     Route: 065
     Dates: start: 20180516
  2. VITAMIN D3 [Concomitant]
     Active Substance: CHOLECALCIFEROL
     Indication: MALNUTRITION
     Route: 065
     Dates: start: 20180131
  3. CLOFAZIMINE [Suspect]
     Active Substance: CLOFAZIMINE
     Indication: TUBERCULOSIS
     Route: 048
     Dates: start: 20180322
  4. IMIPENEM [Suspect]
     Active Substance: IMIPENEM
     Indication: TUBERCULOSIS
     Route: 042
     Dates: start: 20180322
  5. AMOXICILLIN CLAVULANIC ACID [Suspect]
     Active Substance: AMOXICILLIN\CLAVULANIC ACID
     Indication: TUBERCULOSIS
     Route: 048
     Dates: start: 20180322
  6. LEVOTHYROXINE. [Concomitant]
     Active Substance: LEVOTHYROXINE
     Indication: HYPOTHYROIDISM
     Route: 065
     Dates: start: 20180626
  7. FOLIC ACID. [Concomitant]
     Active Substance: FOLIC ACID
     Indication: MALNUTRITION
     Route: 065
     Dates: start: 20180131
  8. SUPRAVIT C [Concomitant]
     Indication: MALNUTRITION
     Route: 065
     Dates: start: 20180228
  9. BEDAQUILINE [Suspect]
     Active Substance: BEDAQUILINE
     Indication: TUBERCULOSIS
     Route: 048
     Dates: start: 20180322
  10. DELAMANID [Suspect]
     Active Substance: DELAMANID
     Indication: TUBERCULOSIS
     Route: 048
     Dates: start: 20180322
  11. PARA?AMINOSALICYLIC ACID [Suspect]
     Active Substance: AMINOSALICYLIC ACID
     Indication: TUBERCULOSIS
     Route: 048
     Dates: start: 20180322
  12. NEOGADINE [Concomitant]
     Indication: DECREASED APPETITE
     Route: 065
     Dates: start: 20180131

REACTIONS (2)
  - Hypoacusis [Unknown]
  - Tinnitus [Unknown]

NARRATIVE: CASE EVENT DATE: 20180907
